FAERS Safety Report 6498010-6 (Version None)
Quarter: 2009Q4

REPORT INFORMATION
  Report Type: 
  Country: None (occurrence: None)
  Receive Date: 20091215
  Receipt Date: 20091203
  Transmission Date: 20100525
  Serious: Yes (Other)
  Sender: FDA-Public Use
  Company Number: PHEH2009US14379

PATIENT
  Sex: Female
  Weight: 243 kg

DRUGS (1)
  1. GLEEVEC [Suspect]
     Indication: CHRONIC MYELOID LEUKAEMIA
     Dosage: 300 MG, QD
     Route: 048
     Dates: start: 20090422

REACTIONS (5)
  - BLOOD COUNT ABNORMAL [None]
  - CHROMATURIA [None]
  - SKIN DISCOLOURATION [None]
  - UPPER EXTREMITY MASS [None]
  - WEIGHT INCREASED [None]
